FAERS Safety Report 9249954 (Version 1)
Quarter: 2013Q2

REPORT INFORMATION
  Report Type: Report from Study
  Country: DE (occurrence: DE)
  Receive Date: 20130424
  Receipt Date: 20130424
  Transmission Date: 20140414
  Serious: Yes (Death, Life-Threatening)
  Sender: FDA-Public Use
  Company Number: DE-ROCHE-1216553

PATIENT
  Age: 67 Year
  Sex: Male
  Weight: 56 kg

DRUGS (7)
  1. BEVACIZUMAB [Suspect]
     Indication: COLON CANCER
     Route: 042
     Dates: start: 20130227
  2. FLUOROURACIL [Suspect]
     Indication: COLON CANCER
     Route: 042
     Dates: start: 20130227
  3. IRINOTECAN HYDROCHLORIDE [Suspect]
     Indication: COLON CANCER
     Route: 042
     Dates: start: 20130227
  4. LOSARTAN [Concomitant]
     Indication: CONSTIPATION
     Route: 048
  5. MORPHINE [Concomitant]
     Indication: PAIN
     Route: 065
  6. PANTOZOL (GERMANY) [Concomitant]
     Indication: PROPHYLAXIS
     Route: 048
  7. TAVOR (GERMANY) [Concomitant]
     Indication: VOMITING
     Route: 048

REACTIONS (2)
  - Lymphopenia [Unknown]
  - Atypical pneumonia [Fatal]
